FAERS Safety Report 5682820-9 (Version None)
Quarter: 2008Q1

REPORT INFORMATION
  Report Type: 
  Country: None (occurrence: None)
  Receive Date: 20080327
  Receipt Date: 20080320
  Transmission Date: 20080703
  Serious: Yes (Hospitalization)
  Sender: FDA-Public Use
  Company Number: A0716691A

PATIENT
  Age: 78 Year
  Sex: Female

DRUGS (7)
  1. CEFTIN [Suspect]
     Indication: PNEUMONIA
     Dosage: 5ML SINGLE DOSE
     Route: 048
     Dates: start: 20080318, end: 20080318
  2. MOXIFLOXACIN HCL [Concomitant]
  3. PREVACID [Concomitant]
  4. CLONIDINE [Concomitant]
  5. LEXAPRO [Concomitant]
  6. METHYLDOPA [Concomitant]
  7. L-DOPA [Concomitant]

REACTIONS (2)
  - MEDICATION ERROR [None]
  - OVERDOSE [None]
